FAERS Safety Report 6985712-8 (Version None)
Quarter: 2010Q3

REPORT INFORMATION
  Report Type: 
  Country: None (occurrence: None)
  Receive Date: 20100915
  Receipt Date: 20100908
  Transmission Date: 20110219
  Serious: Yes (Hospitalization)
  Sender: FDA-Public Use
  Company Number: CA-ABBOTT-10P-028-0669459-00

PATIENT
  Sex: Female
  Weight: 63.56 kg

DRUGS (8)
  1. HUMIRA [Suspect]
     Indication: CROHN'S DISEASE
     Route: 058
     Dates: start: 20091013
  2. MS CONTIN [Concomitant]
     Indication: ABDOMINAL PAIN UPPER
     Route: 048
  3. TEGRETOL [Concomitant]
     Indication: EPILEPSY
     Dosage: 1.5 TAB BID, 1 TAB QHS
     Route: 048
  4. CLONAZEPAM [Concomitant]
     Indication: EPILEPSY
     Dosage: 1/2 TAB BID, 1 TAB QHS
     Route: 048
  5. PANTOLOC [Concomitant]
     Indication: GASTROOESOPHAGEAL REFLUX DISEASE
     Route: 048
  6. TRAZODONE HCL [Concomitant]
     Indication: INSOMNIA
     Dosage: 2 TABS AT BEDTIME
     Route: 048
  7. LORAZEPAM [Concomitant]
     Indication: CONVULSION
     Route: 048
  8. LORAZEPAM [Concomitant]
     Indication: ANXIETY

REACTIONS (6)
  - ABDOMINAL DISTENSION [None]
  - ABDOMINAL PAIN UPPER [None]
  - CROHN'S DISEASE [None]
  - DIARRHOEA [None]
  - DYSPHAGIA [None]
  - NAUSEA [None]
